FAERS Safety Report 12084953 (Version 1)
Quarter: 2016Q1

REPORT INFORMATION
  Report Type: Spontaneous
  Country: KR (occurrence: KR)
  Receive Date: 20160217
  Receipt Date: 20160217
  Transmission Date: 20160526
  Serious: Yes (Death, Hospitalization)
  Sender: FDA-Public Use
  Company Number: KR-BIOCRYST PHARMACEUTICALS, INC.-2016BCR00032

PATIENT
  Age: 73 Year
  Sex: Male

DRUGS (1)
  1. PERAMIFLU [Suspect]
     Active Substance: PERAMIVIR
     Indication: INFLUENZA
     Dosage: 30 ML, ONCE
     Route: 042
     Dates: start: 20160116, end: 20160116

REACTIONS (4)
  - Septic shock [Fatal]
  - Hepatorenal syndrome [Fatal]
  - Pneumonia aspiration [Not Recovered/Not Resolved]
  - Hepatic cirrhosis [Fatal]

NARRATIVE: CASE EVENT DATE: 20160116
